FAERS Safety Report 12699311 (Version 2)
Quarter: 2016Q3

REPORT INFORMATION
  Report Type: Spontaneous
  Country: US (occurrence: US)
  Receive Date: 20160830
  Receipt Date: 20160905
  Transmission Date: 20161109
  Serious: Yes (Hospitalization)
  Sender: FDA-Public Use
  Company Number: US-PFIZER INC-2016407148

PATIENT
  Age: 62 Year
  Sex: Male
  Weight: 74.84 kg

DRUGS (8)
  1. CARVEDILOL. [Concomitant]
     Active Substance: CARVEDILOL
     Indication: CARDIAC DISORDER
     Dosage: 3.125 MG, 2X/DAY
     Route: 048
     Dates: start: 201602
  2. LYRICA [Suspect]
     Active Substance: PREGABALIN
     Indication: TRIGEMINAL NEURALGIA
     Dosage: 100 MG, 3X/DAY
     Dates: start: 201601
  3. OXICODONE [Concomitant]
     Indication: TRIGEMINAL NEURALGIA
     Dosage: 1 TABLET OF 10MG EVERY 6 HOURS
     Route: 048
     Dates: start: 201601
  4. LISINOPRIL. [Concomitant]
     Active Substance: LISINOPRIL
     Indication: HYPERTENSION
     Dosage: 10 MG, 1X/DAY
     Route: 048
     Dates: start: 201602
  5. LOVASTATIN. [Concomitant]
     Active Substance: LOVASTATIN
     Indication: CARDIAC DISORDER
     Dosage: 40 MG, 1X/DAY
     Route: 048
     Dates: start: 201602
  6. LYRICA [Suspect]
     Active Substance: PREGABALIN
     Dosage: UNK, 1X/DAY
  7. LYRICA [Suspect]
     Active Substance: PREGABALIN
     Dosage: 200 MG, 3X/DAY
     Route: 048
     Dates: start: 201604
  8. PLAVIX [Concomitant]
     Active Substance: CLOPIDOGREL BISULFATE
     Indication: STENT PLACEMENT
     Dosage: 75 MG, 1X/DAY
     Route: 048
     Dates: start: 201602

REACTIONS (9)
  - Drooling [Unknown]
  - Intentional product use issue [Unknown]
  - Blood pressure increased [Unknown]
  - Eating disorder [Not Recovered/Not Resolved]
  - Anger [Not Recovered/Not Resolved]
  - Weight decreased [Recovering/Resolving]
  - Dyskinesia [Not Recovered/Not Resolved]
  - Pain [Not Recovered/Not Resolved]
  - Pain in jaw [Unknown]

NARRATIVE: CASE EVENT DATE: 201607
